FAERS Safety Report 21473674 (Version 4)
Quarter: 2023Q2

REPORT INFORMATION
  Report Type: Spontaneous
  Country: IN (occurrence: IN)
  Receive Date: 20221018
  Receipt Date: 20230417
  Transmission Date: 20230721
  Serious: Yes (Other)
  Sender: FDA-Public Use
  Company Number: IN-PFIZER INC-PV202200084267

PATIENT
  Age: 79 Year
  Sex: Female

DRUGS (4)
  1. PALBOCICLIB [Suspect]
     Active Substance: PALBOCICLIB
     Dosage: UNK
  2. PALBOCICLIB [Suspect]
     Active Substance: PALBOCICLIB
     Dosage: 125 MG, CYCLIC (X 21 D-7 DAY GAP)
     Route: 048
  3. FULVESTRANT [Concomitant]
     Active Substance: FULVESTRANT
     Indication: Breast cancer metastatic
     Dosage: 500 MG, DAILY (250MG IN EACH BUTTOCK)
     Route: 030
     Dates: end: 20221015
  4. ZOLEDRONIC ACID [Concomitant]
     Active Substance: ZOLEDRONIC ACID
     Indication: Metastases to bone
     Dosage: 4 MG (IN 100 ML NS OVER 15-20 MIN)
     Dates: end: 20221015

REACTIONS (4)
  - Blood pressure increased [Unknown]
  - Heart rate increased [Unknown]
  - Vocal cord disorder [Unknown]
  - Speech disorder [Unknown]
